FAERS Safety Report 15343797 (Version 2)
Quarter: 2018Q4

REPORT INFORMATION
  Report Type: Report from Study
  Country: CA (occurrence: CA)
  Receive Date: 20180903
  Receipt Date: 20181031
  Transmission Date: 20190204
  Serious: Yes (Hospitalization, Other)
  Sender: FDA-Public Use
  Company Number: CA-TAKEDA-2018TUS019057

PATIENT
  Age: 47 Year
  Sex: Female

DRUGS (2)
  1. EMTEC [Concomitant]
     Dosage: 300 MG, QD
  2. VEDOLIZUMAB [Suspect]
     Active Substance: VEDOLIZUMAB
     Indication: CROHN^S DISEASE
     Dosage: 300 MG, UNK
     Route: 042
     Dates: start: 20180522

REACTIONS (4)
  - Intestinal stenosis [Unknown]
  - Drug ineffective [Unknown]
  - Intestinal obstruction [Unknown]
  - Arthralgia [Not Recovered/Not Resolved]

NARRATIVE: CASE EVENT DATE: 20180523
